FAERS Safety Report 6011802-2 (Version None)
Quarter: 2008Q4

REPORT INFORMATION
  Report Type: 
  Country: None (occurrence: None)
  Receive Date: 20081218
  Receipt Date: 20080707
  Transmission Date: 20090506
  Serious: No
  Sender: FDA-Public Use
  Company Number: US-ABBOTT-08P-163-0461574-00

PATIENT
  Sex: Female
  Weight: 69.008 kg

DRUGS (3)
  1. MERIDIA [Suspect]
     Indication: EATING DISORDER
     Route: 048
     Dates: start: 20020101, end: 20071201
  2. MERIDIA [Suspect]
     Route: 048
     Dates: start: 20080606, end: 20080708
  3. LIOTHYRONINE SODIUM [Concomitant]
     Indication: THYROID DISORDER
     Route: 048
     Dates: start: 20071001

REACTIONS (2)
  - 5-HYDROXYINDOLACETIC ACID IN URINE [None]
  - FIBROMYALGIA [None]
